FAERS Safety Report 18966601 (Version 1)
Quarter: 2021Q1

REPORT INFORMATION
  Report Type: Spontaneous
  Country: AT (occurrence: AT)
  Receive Date: 20210304
  Receipt Date: 20210304
  Transmission Date: 20210420
  Serious: Yes (Other)
  Sender: FDA-Public Use
  Company Number: AT-AMGEN-AUTNI2021029320

PATIENT
  Age: 44 Year

DRUGS (20)
  1. CALCIDURAN [Concomitant]
     Active Substance: ASCORBIC ACID\CALCIUM PHOSPHATE\CHOLECALCIFEROL\CITRIC ACID MONOHYDRATE
     Dosage: ONGOING = CHECKED
     Dates: start: 20190827
  2. TRAMAL RETARD [Concomitant]
     Active Substance: TRAMADOL
     Dosage: ONGOING = CHECKED
     Dates: start: 20180615
  3. THIAMAZOLE [Concomitant]
     Active Substance: METHIMAZOLE
     Dosage: ONGOING = NOT CHECKED
     Dates: end: 20190308
  4. TRASTUZUMAB. [Suspect]
     Active Substance: TRASTUZUMAB
     Indication: BREAST CANCER
     Dosage: MOST RECENT DOSE PRIOR TO THE EVENT: 20181015
     Route: 042
     Dates: start: 20180924, end: 20180924
  5. PERJETA [Suspect]
     Active Substance: PERTUZUMAB
     Indication: BREAST CANCER
     Dosage: FREQUENCY: Q4W ? EVERY 4 WEEKS MOST RECENT DOSE PRIOR TO THE EVENT: 20181015
     Route: 042
     Dates: start: 20180924, end: 20180924
  6. NOVALGIN (METAMIZOLE SODIUM) [Concomitant]
     Active Substance: METAMIZOLE SODIUM
     Dosage: ONGOING EQUAL TO CHECKED
     Dates: start: 20180615
  7. ZOFRAN [Concomitant]
     Active Substance: ONDANSETRON HYDROCHLORIDE
     Dosage: ONGOING = CHECKED
     Dates: start: 20180924
  8. TRAMAL [Concomitant]
     Active Substance: TRAMADOL
     Dosage: ONGOING = CHECKED
     Dates: start: 20180615, end: 20190308
  9. PRAM [CITALOPRAM HYDROBROMIDE] [Concomitant]
     Dosage: ONGOING = CHECKED
  10. XGEVA [Suspect]
     Active Substance: DENOSUMAB
     Indication: BREAST CANCER
     Route: 058
     Dates: start: 20180918, end: 20181120
  11. ZOFRAN [Concomitant]
     Active Substance: ONDANSETRON HYDROCHLORIDE
     Dosage: ONGOING = CHECKED
     Dates: start: 20181016
  12. XANOR [Concomitant]
     Active Substance: ALPRAZOLAM
     Dosage: ONGOING = CHECKED
     Dates: start: 20181114
  13. DRONABINOL. [Concomitant]
     Active Substance: DRONABINOL
     Dosage: ONGOING = CHECKED
  14. TRASTUZUMAB EMTANSINE [Suspect]
     Active Substance: ADO-TRASTUZUMAB EMTANSINE
     Indication: BREAST CANCER
     Dosage: 3.6 MILLIGRAM/KILOGRAM, Q3WK
     Route: 042
     Dates: start: 20200101
  15. BINOCRIT [Concomitant]
     Active Substance: ERYTHROPOIETIN
     Dosage: ONGOING = CHECKED
     Dates: start: 20181016, end: 20190308
  16. FORTECORTIN [DEXAMETHASONE] [Concomitant]
     Active Substance: DEXAMETHASONE
     Dosage: ONGOING = CHECKED
     Dates: start: 20180924
  17. EMEND [Concomitant]
     Active Substance: APREPITANT
     Dosage: ONGOING = CHECKED
     Dates: start: 20181114
  18. TAXOTERE [Suspect]
     Active Substance: DOCETAXEL
     Indication: BREAST CANCER
     Dosage: FREQUENCY: Q4W ? EVERY 4 WEEKS MOST RECENT DOSE PRIOR TO THE EVENT: 20181114
     Route: 042
     Dates: start: 20180924, end: 20180924
  19. FORTECORTIN [DEXAMETHASONE] [Concomitant]
     Active Substance: DEXAMETHASONE
     Dosage: ONGOING = CHECKED
     Dates: start: 20181016
  20. MAXI KALZ [Concomitant]
     Dosage: ONGOING = NOT CHECKED
     Dates: start: 20181207, end: 20190827

REACTIONS (2)
  - Off label use [Unknown]
  - Leukopenia [Recovered/Resolved]

NARRATIVE: CASE EVENT DATE: 20181205
